FAERS Safety Report 15857649 (Version 1)
Quarter: 2018Q4

REPORT INFORMATION
  Report Type: Spontaneous
  Country: US (occurrence: US)
  Receive Date: 20181228
  Receipt Date: 20181228
  Transmission Date: 20190205
  Serious: No
  Sender: FDA-Public Use
  Company Number: None

PATIENT

DRUGS (13)
  1. VITAMIN E [Concomitant]
     Active Substance: .ALPHA.-TOCOPHEROL
  2. VITAMIN D [Concomitant]
     Active Substance: CHOLECALCIFEROL
  3. ELIQUIS [Suspect]
     Active Substance: APIXABAN
     Indication: ARTHRALGIA
     Dosage: ?          QUANTITY:25 MG MILLIGRAM(S);?
     Route: 048
     Dates: start: 201502
  4. DIGOXIN. [Concomitant]
     Active Substance: DIGOXIN
  5. VIT B [Concomitant]
     Active Substance: VITAMIN B
  6. VIT. MULTI [Concomitant]
  7. BABY ASPIRIN [Concomitant]
     Active Substance: ASPIRIN
  8. VITAMIN C [Concomitant]
     Active Substance: ASCORBIC ACID
  9. TART CHERRY [Concomitant]
  10. ELIQUIS [Suspect]
     Active Substance: APIXABAN
     Indication: ATRIAL FIBRILLATION
     Dosage: ?          QUANTITY:25 MG MILLIGRAM(S);?
     Route: 048
     Dates: start: 201502
  11. ZIMS MAX FREEZE [Suspect]
     Active Substance: LIDOCAINE\MENTHOL\MENTHYL SALICYLATE, (+/-)-
     Indication: ARTHRALGIA
  12. SOTOLOL [Concomitant]
     Active Substance: SOTALOL
  13. DOVENEX [Concomitant]

REACTIONS (3)
  - Vascular insufficiency [None]
  - Peripheral swelling [None]
  - Joint swelling [None]
